FAERS Safety Report 4382478-5 (Version None)
Quarter: 2004Q2

REPORT INFORMATION
  Report Type: 
  Country: None (occurrence: None)
  Receive Date: 20040621
  Receipt Date: 20040621
  Transmission Date: 20050107
  Serious: Yes (Other)
  Sender: FDA-Public Use
  Company Number: None

PATIENT
  Age: 50 Year
  Sex: Female
  Weight: 113.3993 kg

DRUGS (1)
  1. ZIACAM [Suspect]
     Dosage: NASAL
     Route: 045

REACTIONS (3)
  - DYSGEUSIA [None]
  - NASAL DISCOMFORT [None]
  - PAROSMIA [None]
